FAERS Safety Report 17722144 (Version 1)
Quarter: 2020Q2

REPORT INFORMATION
  Report Type: Spontaneous
  Country: DE (occurrence: DE)
  Receive Date: 20200429
  Receipt Date: 20200429
  Transmission Date: 20200714
  Serious: Yes (Other)
  Sender: FDA-Public Use
  Company Number: DE-DRREDDYS-GER/GER/20/0122307

PATIENT
  Age: 59 Year
  Sex: Female

DRUGS (10)
  1. CEFTRIAXONE. [Suspect]
     Active Substance: CEFTRIAXONE
     Indication: ANTIBIOTIC PROPHYLAXIS
     Dosage: 30 MINUTES BEFORE OPERATION
  2. FENTANYL. [Suspect]
     Active Substance: FENTANYL
     Indication: ANAESTHESIA
  3. FENTANYL. [Suspect]
     Active Substance: FENTANYL
  4. REMIFENTANIL [Suspect]
     Active Substance: REMIFENTANIL
     Indication: GENERAL ANAESTHESIA
  5. PROPOFOL. [Suspect]
     Active Substance: PROPOFOL
     Indication: GENERAL ANAESTHESIA
  6. SUCCINYLCHOLIN [Suspect]
     Active Substance: SUCCINYLCHOLINE CHLORIDE
     Indication: ANAESTHESIA
  7. VECURONIUM BROMIDE. [Suspect]
     Active Substance: VECURONIUM BROMIDE
     Indication: ANAESTHESIA
  8. PROPOFOL. [Suspect]
     Active Substance: PROPOFOL
     Indication: ANAESTHESIA
  9. 100 PERCENT OXYGEN [Suspect]
     Active Substance: OXYGEN
     Indication: PRODUCT USED FOR UNKNOWN INDICATION
  10. PROPOFOL. [Suspect]
     Active Substance: PROPOFOL

REACTIONS (2)
  - Hypotension [Recovered/Resolved]
  - Rhabdomyolysis [Unknown]
